FAERS Safety Report 16804138 (Version 1)
Quarter: 2019Q3

REPORT INFORMATION
  Report Type: Spontaneous
  Country: US (occurrence: US)
  Receive Date: 20190913
  Receipt Date: 20190913
  Transmission Date: 20191005
  Serious: Yes (Hospitalization, Other)
  Sender: FDA-Public Use
  Company Number: US-GLAND PHARMA LIMITED-2074427

PATIENT
  Age: 74 Year
  Sex: Female

DRUGS (4)
  1. PULMICORT FLEXHALER [Suspect]
     Active Substance: BUDESONIDE
  2. LISINOPRIL. [Suspect]
     Active Substance: LISINOPRIL
  3. BRILINTA [Suspect]
     Active Substance: TICAGRELOR
     Route: 048
     Dates: start: 201704
  4. METOPROLOL TARTRATE. [Suspect]
     Active Substance: METOPROLOL TARTRATE
     Indication: PRODUCT USED FOR UNKNOWN INDICATION

REACTIONS (11)
  - Hospitalisation [Unknown]
  - Hyperthyroidism [Unknown]
  - Arterial occlusive disease [Unknown]
  - Blood uric acid increased [Unknown]
  - Thyroid function test abnormal [Unknown]
  - Myocardial infarction [Unknown]
  - Alopecia [Unknown]
  - Asthma [Unknown]
  - Cardiac disorder [Unknown]
  - Blood pressure increased [Unknown]
  - Gastrointestinal disorder [Unknown]

NARRATIVE: CASE EVENT DATE: 201908
